FAERS Safety Report 9329247 (Version 1)
Quarter: 2013Q2

REPORT INFORMATION
  Report Type: Spontaneous
  Country: US (occurrence: US)
  Receive Date: 20130604
  Receipt Date: 20130604
  Transmission Date: 20140414
  Serious: No
  Sender: FDA-Public Use
  Company Number: US-SANOFI-AVENTIS-2012SA075810

PATIENT
  Age: 48 Year
  Sex: Female

DRUGS (4)
  1. LANTUS [Suspect]
     Indication: TYPE 2 DIABETES MELLITUS
     Dosage: DOSE:100 UNIT(S)
     Route: 058
  2. LANTUS [Suspect]
     Indication: TYPE 1 DIABETES MELLITUS
     Dosage: DOSE:100 UNIT(S)
     Route: 058
  3. ORAL ANTIDIABETICS [Concomitant]
  4. INSULIN [Concomitant]

REACTIONS (6)
  - Hyperhidrosis [Unknown]
  - Chills [Unknown]
  - Headache [Unknown]
  - Vision blurred [Unknown]
  - Vomiting [Unknown]
  - Blood glucose increased [Not Recovered/Not Resolved]
